FAERS Safety Report 5281886-8 (Version None)
Quarter: 2007Q1

REPORT INFORMATION
  Report Type: 
  Country: None (occurrence: None)
  Receive Date: 20070330
  Receipt Date: 20070312
  Transmission Date: 20070707
  Serious: Yes (Other)
  Sender: FDA-Public Use
  Company Number: US-SANOFI-SYNTHELABO-A03200702327

PATIENT
  Sex: Male

DRUGS (17)
  1. TRIMAX [Concomitant]
     Route: 065
  2. METHOCARBAMOL [Concomitant]
     Route: 065
  3. IBUPROFEN [Concomitant]
     Route: 065
  4. OXYCONTIN [Concomitant]
     Route: 065
  5. HYDROCODONE [Concomitant]
     Route: 065
  6. HUMALOG MIX 75/25 [Concomitant]
     Route: 065
  7. HUMALOG MIX 75/25 [Concomitant]
     Route: 065
  8. DICYCLOMINE [Concomitant]
     Dosage: UNK
     Route: 065
  9. ACTOS [Concomitant]
     Route: 048
  10. METFORMIN HCL [Concomitant]
     Route: 048
  11. SYNTHROID [Concomitant]
     Route: 065
  12. ALTACE [Concomitant]
     Route: 065
  13. WELLBUTRIN XL [Concomitant]
     Route: 065
  14. PROTONIX [Concomitant]
     Route: 065
  15. CELEBREX [Concomitant]
     Route: 065
  16. LEXAPRO [Concomitant]
     Route: 065
  17. AMBIEN [Suspect]
     Indication: INSOMNIA
     Route: 048
     Dates: start: 20020308, end: 20061023

REACTIONS (3)
  - CONCUSSION [None]
  - MULTIPLE INJURIES [None]
  - SLEEP WALKING [None]
